FAERS Safety Report 8952762 (Version 1)
Quarter: 2012Q4

REPORT INFORMATION
  Report Type: 
  Country: FR (occurrence: FR)
  Receive Date: 20121205
  Receipt Date: 20121205
  Transmission Date: 20130627
  Serious: Yes (Other)
  Sender: FDA-Public Use
  Company Number: FR-ASTRAZENECA-2012SE71866

PATIENT
  Age: 44 Year
  Sex: Male
  Weight: 105 kg

DRUGS (3)
  1. XEROQUEL [Suspect]
     Indication: BIPOLAR DISORDER
     Route: 048
     Dates: start: 20120130, end: 20120914
  2. DEPAKOTE [Concomitant]
     Route: 048
     Dates: start: 201209, end: 201209
  3. ALPRAZOLAM [Concomitant]
     Route: 048

REACTIONS (2)
  - Blood triglycerides increased [Unknown]
  - Weight increased [Unknown]
